FAERS Safety Report 7892614-1 (Version None)
Quarter: 2011Q4

REPORT INFORMATION
  Report Type: 
  Country: None (occurrence: None)
  Receive Date: 20111102
  Receipt Date: 20111010
  Transmission Date: 20120403
  Serious: Yes (Hospitalization, Other)
  Sender: FDA-Public Use
  Company Number: 2011PROUSA00681

PATIENT
  Age: 71 Year
  Sex: Male
  Weight: 110 kg

DRUGS (3)
  1. PROVENGE [Suspect]
     Indication: PROSTATE CANCER METASTATIC
     Dosage: 250 ML, SINGLE, INTRAVNEOUS
     Route: 042
     Dates: start: 20110617, end: 20110617
  2. PROVENGE [Suspect]
     Indication: PROSTATE CANCER METASTATIC
     Dosage: 250 ML, SINGLE, INTRAVNEOUS
     Route: 042
     Dates: start: 20110603, end: 20110603
  3. PROVENGE [Suspect]

REACTIONS (3)
  - RENAL FAILURE ACUTE [None]
  - GASTROINTESTINAL HAEMORRHAGE [None]
  - FEMUR FRACTURE [None]
